FAERS Safety Report 9620262 (Version 2)
Quarter: 2013Q4

REPORT INFORMATION
  Report Type: Spontaneous
  Country: US (occurrence: US)
  Receive Date: 20131014
  Receipt Date: 20131014
  Transmission Date: 20140711
  Serious: No
  Sender: FDA-Public Use
  Company Number: US-ALLERGAN-1307065US

PATIENT
  Age: 76 Year
  Sex: Male

DRUGS (2)
  1. ALPHAGAN P [Suspect]
     Indication: GLAUCOMA
     Dosage: 2 GTT, BID
     Route: 047
     Dates: end: 201305
  2. METFORMIN [Concomitant]
     Indication: DIABETES MELLITUS

REACTIONS (3)
  - Inappropriate schedule of drug administration [Unknown]
  - Abnormal sensation in eye [Recovered/Resolved]
  - Abnormal sensation in eye [Recovered/Resolved]
